FAERS Safety Report 8989086 (Version 1)
Quarter: 2012Q4

REPORT INFORMATION
  Report Type: 
  Country: IT (occurrence: IT)
  Receive Date: 20121228
  Receipt Date: 20121228
  Transmission Date: 20130627
  Serious: Yes (Hospitalization)
  Sender: FDA-Public Use
  Company Number: IT-PFIZER INC-2012329889

PATIENT
  Age: 75 Year
  Sex: Female

DRUGS (5)
  1. AMIODARONE HCL [Suspect]
     Dosage: 1 DF, daily
     Route: 048
     Dates: start: 20121024, end: 20121029
  2. BACTRIM [Suspect]
     Dosage: 1 DF, daily
     Route: 048
     Dates: start: 20121024, end: 20121029
  3. ACICLOVIR [Suspect]
     Dosage: 1 DF, daily
     Route: 048
     Dates: start: 20121024, end: 20121029
  4. LIMPIDEX [Concomitant]
     Dosage: UNK
  5. FUROSEMIDE [Concomitant]
     Dosage: UNK

REACTIONS (3)
  - Asthenia [Not Recovered/Not Resolved]
  - Nausea [Not Recovered/Not Resolved]
  - Vomiting [Not Recovered/Not Resolved]
